FAERS Safety Report 23678996 (Version 1)
Quarter: 2024Q1

REPORT INFORMATION
  Report Type: Spontaneous
  Country: US (occurrence: None)
  Receive Date: 20240326
  Receipt Date: 20240326
  Transmission Date: 20240409
  Serious: Yes (Disabling, Other)
  Sender: FDA-Public Use
  Company Number: None

PATIENT
  Age: 28 Year
  Sex: Male
  Weight: 72 kg

DRUGS (4)
  1. TOPIRAMATE [Suspect]
     Active Substance: TOPIRAMATE
     Indication: Migraine
     Dosage: OTHER QUANTITY : 1 TABLET(S);?
     Route: 048
  2. SUMATRIPTAN [Concomitant]
     Active Substance: SUMATRIPTAN
  3. Atrix [Concomitant]
  4. delta 8 thc vape [Concomitant]

REACTIONS (9)
  - Memory impairment [None]
  - Disturbance in attention [None]
  - Cluster headache [None]
  - Facial pain [None]
  - Major depression [None]
  - Anxiety [None]
  - Paranoia [None]
  - Anger [None]
  - Job dissatisfaction [None]

NARRATIVE: CASE EVENT DATE: 20240326
